FAERS Safety Report 6283205-7 (Version None)
Quarter: 2009Q3

REPORT INFORMATION
  Report Type: 
  Country: None (occurrence: None)
  Receive Date: 20090724
  Receipt Date: 20090715
  Transmission Date: 20100115
  Serious: Yes (Life-Threatening, Hospitalization)
  Sender: FDA-Public Use
  Company Number: DE-TEVA-202455ISR

PATIENT
  Sex: Male
  Weight: 93.5 kg

DRUGS (14)
  1. PACLITAXEL [Suspect]
     Indication: NON-SMALL CELL LUNG CANCER
     Route: 042
     Dates: start: 20090616
  2. CARBOPLATIN [Suspect]
     Indication: NON-SMALL CELL LUNG CANCER
     Route: 042
     Dates: start: 20090616
  3. CP-751,871(STUDY DRUG) [Suspect]
     Indication: NON-SMALL CELL LUNG CANCER
     Route: 042
     Dates: start: 20090616
  4. DEXAMETHASONE [Concomitant]
     Dates: start: 20090616, end: 20090616
  5. RANITIDINE HYDROCHLORIDE [Concomitant]
     Dates: start: 20090616, end: 20090616
  6. CLEMASTINE FUMARATE [Concomitant]
     Dates: start: 20090616, end: 20090616
  7. ONDANSETRON HYDROCHLORIDE [Concomitant]
     Dates: start: 20090616, end: 20090616
  8. VALSARTAN [Concomitant]
  9. RAMIPRIL [Concomitant]
  10. FLUVASTATIN [Concomitant]
  11. BISOPROLOL [Concomitant]
  12. ENOXAPARIN SODIUM [Concomitant]
  13. LANSOPRAZOLE [Concomitant]
  14. METOCLOPRAMIDE [Concomitant]

REACTIONS (3)
  - CEREBRAL INFARCTION [None]
  - HAEMOPTYSIS [None]
  - PAIN IN EXTREMITY [None]
